FAERS Safety Report 10432351 (Version 1)
Quarter: 2014Q3

REPORT INFORMATION
  Report Type: Spontaneous
  Country: US (occurrence: None)
  Receive Date: 20140904
  Receipt Date: 20140904
  Transmission Date: 20150326
  Serious: Yes (Death)
  Sender: FDA-Public Use
  Company Number: None

PATIENT
  Age: 85 Year
  Sex: Male
  Weight: 63.5 kg

DRUGS (8)
  1. EXJADE 250 MG NOVARTIS [Suspect]
     Active Substance: DEFERASIROX
     Indication: IRON OVERLOAD
     Dosage: 1 PILL QD ORAL 4 MONTHS
     Route: 048
  2. HYDROXYCHLORQUINE [Concomitant]
  3. IMDUR [Concomitant]
     Active Substance: ISOSORBIDE MONONITRATE
  4. HUMULIN 70/30 INSULIN [Concomitant]
  5. PLAVIX [Concomitant]
     Active Substance: CLOPIDOGREL BISULFATE
  6. LASIX [Concomitant]
     Active Substance: FUROSEMIDE
  7. ASA [Concomitant]
     Active Substance: ASPIRIN
  8. CARVEDILOL. [Concomitant]
     Active Substance: CARVEDILOL

REACTIONS (1)
  - Myocardial infarction [None]

NARRATIVE: CASE EVENT DATE: 20140825
